FAERS Safety Report 9470006 (Version 1)
Quarter: 2013Q3

REPORT INFORMATION
  Report Type: Spontaneous
  Country: FR (occurrence: FR)
  Receive Date: 20130822
  Receipt Date: 20130822
  Transmission Date: 20140515
  Serious: Yes (Hospitalization)
  Sender: FDA-Public Use
  Company Number: FR-ROCHE-1264454

PATIENT
  Age: 62 Year
  Sex: Female
  Weight: 62 kg

DRUGS (14)
  1. MABTHERA [Suspect]
     Indication: MIXED CONNECTIVE TISSUE DISEASE
     Route: 041
     Dates: start: 20130625, end: 20130709
  2. MABTHERA [Suspect]
     Indication: SJOGREN^S SYNDROME
     Route: 065
     Dates: start: 20080128
  3. MABTHERA [Suspect]
     Indication: SYSTEMIC LUPUS ERYTHEMATOSUS
     Route: 065
     Dates: start: 20080201
  4. IMUREL [Concomitant]
     Route: 065
     Dates: end: 2008
  5. BI-TILDIEM [Concomitant]
  6. TRIATEC (FRANCE) [Concomitant]
  7. DOLIPRANE [Concomitant]
  8. INIPOMP [Concomitant]
  9. OROCAL [Concomitant]
  10. UVEDOSE [Concomitant]
  11. VITAMIN B12 [Concomitant]
  12. DACUDOSES [Concomitant]
  13. VOLTARENE (FRANCE) [Concomitant]
  14. AQUARETIC [Concomitant]

REACTIONS (2)
  - Purpura [Recovered/Resolved]
  - Arthritis [Recovered/Resolved]
